FAERS Safety Report 25317006 (Version 1)
Quarter: 2025Q2

REPORT INFORMATION
  Report Type: Spontaneous
  Country: US (occurrence: US)
  Receive Date: 20250515
  Receipt Date: 20250515
  Transmission Date: 20250717
  Serious: Yes (Other)
  Sender: DR REDDYS
  Company Number: US-DRL-USA-USA/2025/05/007006

PATIENT
  Sex: Female

DRUGS (6)
  1. AMIODARONE [Suspect]
     Active Substance: AMIODARONE
     Indication: Atrial tachycardia
  2. PROPRANOLOL [Concomitant]
     Active Substance: PROPRANOLOL HYDROCHLORIDE
     Indication: Atrial tachycardia
  3. DIGOXIN [Concomitant]
     Active Substance: DIGOXIN
     Indication: Atrial tachycardia
  4. ESMOLOL [Concomitant]
     Active Substance: ESMOLOL HYDROCHLORIDE
     Indication: Atrial tachycardia
  5. SOTALOL [Concomitant]
     Active Substance: SOTALOL
     Indication: Atrial tachycardia
  6. IVABRADINE [Concomitant]
     Active Substance: IVABRADINE
     Indication: Atrial tachycardia

REACTIONS (1)
  - Drug ineffective for unapproved indication [Unknown]
